FAERS Safety Report 7833969-3 (Version None)
Quarter: 2011Q4

REPORT INFORMATION
  Report Type: 
  Country: None (occurrence: None)
  Receive Date: 20111024
  Receipt Date: 20111013
  Transmission Date: 20120403
  Serious: Yes (Other)
  Sender: FDA-Public Use
  Company Number: CA-JNJFOC-20111006721

PATIENT
  Sex: Female
  Weight: 95 kg

DRUGS (8)
  1. ASPIRIN [Concomitant]
     Route: 065
  2. LEFLUNOMIDE [Concomitant]
     Dosage: Q 2ND DAY
     Route: 065
  3. CRESTOR [Concomitant]
     Route: 065
  4. METOPROLOL TARTRATE [Concomitant]
     Route: 065
  5. REMICADE [Suspect]
     Route: 042
     Dates: start: 20110902
  6. MISOPROSTOL [Concomitant]
     Route: 065
  7. REMICADE [Suspect]
     Indication: RHEUMATOID ARTHRITIS
     Route: 042
     Dates: start: 20020904
  8. TYLENOL-500 [Concomitant]
     Route: 065

REACTIONS (3)
  - KNEE ARTHROPLASTY [None]
  - DIZZINESS [None]
  - APPETITE DISORDER [None]
